FAERS Safety Report 24556608 (Version 1)
Quarter: 2024Q4

REPORT INFORMATION
  Report Type: Spontaneous
  Country: US (occurrence: None)
  Receive Date: 20241028
  Receipt Date: 20241028
  Transmission Date: 20250115
  Serious: No
  Sender: Public
  Company Number: None

PATIENT
  Age: 22 Year
  Sex: Male

DRUGS (1)
  1. XDEMVY [Suspect]
     Active Substance: LOTILANER
     Indication: Acariasis
     Dosage: OTHER QUANTITY : 1 DROP BOTH EYES DROP(S) - GTT;?FREQUENCY : TWICE A DAY;?
     Route: 047
     Dates: start: 20241007

REACTIONS (1)
  - Hordeolum [None]

NARRATIVE: CASE EVENT DATE: 20241028
